FAERS Safety Report 7295141-8 (Version None)
Quarter: 2011Q1

REPORT INFORMATION
  Report Type: 
  Country: None (occurrence: None)
  Receive Date: 20110216
  Receipt Date: 20110203
  Transmission Date: 20110831
  Serious: Yes (Other)
  Sender: FDA-Public Use
  Company Number: JP-NOVOPROD-322717

PATIENT
  Age: 83 Year
  Sex: Female
  Weight: 49 kg

DRUGS (10)
  1. AMARYL [Concomitant]
     Dosage: 1 MG, QD
     Route: 048
     Dates: start: 20110109, end: 20110129
  2. PLETAL [Concomitant]
     Dosage: UNK
     Route: 048
  3. LUPRAC [Concomitant]
     Dosage: UNK
     Route: 048
  4. VICTOZA [Suspect]
     Dosage: 0.6 MG, QD
     Route: 058
     Dates: start: 20110116, end: 20110118
  5. HUMULIN 3/7 [Concomitant]
     Dosage: 8 U, QD
     Route: 058
     Dates: start: 20110109, end: 20110115
  6. URSO                               /00465701/ [Concomitant]
  7. MAGMITT [Concomitant]
     Dosage: /PO
     Route: 048
  8. GRAMALIL [Concomitant]
     Dosage: UNK
     Route: 048
  9. VICTOZA [Suspect]
     Indication: TYPE 2 DIABETES MELLITUS
     Dosage: 0.3 MG, QD
     Route: 058
     Dates: start: 20110109
  10. CRESTOR [Concomitant]
     Dosage: UNK
     Route: 048

REACTIONS (2)
  - ACTIVITIES OF DAILY LIVING IMPAIRED [None]
  - ASTHENIA [None]
